FAERS Safety Report 8389539 (Version 2)
Quarter: 2012Q4

REPORT INFORMATION
  Report Type: Report from Study
  Country: ES (occurrence: ES)
  Receive Date: 20120203
  Receipt Date: 20121119
  Transmission Date: 20130627
  Serious: Yes (Other)
  Sender: FDA-Public Use
  Company Number: ES-JNJFOC-20120111934

PATIENT
  Age: 44 Year
  Sex: Female
  Weight: 69 kg

DRUGS (13)
  1. STELARA [Suspect]
     Indication: PSORIASIS
     Dosage: approximately 12 injections received
     Route: 058
     Dates: start: 20091016
  2. BENZODIAZEPINE NOS [Concomitant]
  3. SELECTIVE SEROTONIN REUPTAKE INHIBITORS [Concomitant]
  4. TRICYCLIC ANTIDEPRESSANTS [Concomitant]
  5. ANGIOTENSIN II  ANTAGONISTS [Concomitant]
  6. PROTON PUMP INHIBITORS [Concomitant]
  7. ACID FOLIC [Concomitant]
  8. NSAIDS [Concomitant]
  9. ANTICOAGULANTS [Concomitant]
  10. PARACETAMOL [Concomitant]
  11. ANTIDIABETIC [Concomitant]
     Route: 048
  12. ACE INHIBITORS [Concomitant]
  13. STATINS [Concomitant]

REACTIONS (1)
  - Pneumonia bacterial [Recovered/Resolved]
